FAERS Safety Report 9508326 (Version 1)
Quarter: 2013Q3

REPORT INFORMATION
  Report Type: Spontaneous
  Country: US (occurrence: US)
  Receive Date: 20130909
  Receipt Date: 20130909
  Transmission Date: 20140515
  Serious: No
  Sender: FDA-Public Use
  Company Number: US-PFIZER INC-2013257190

PATIENT
  Age: 6 Month
  Sex: Female
  Weight: 7.26 kg

DRUGS (1)
  1. CHILDREN^S MOTRIN COLD ORIGINAL BERRY FLAVOR [Suspect]
     Indication: PYREXIA
     Dosage: 1.85 ML, UNK
     Route: 048
     Dates: start: 20130709, end: 20130711

REACTIONS (1)
  - Vomiting [Recovered/Resolved]
